FAERS Safety Report 9813060 (Version 1)
Quarter: 2014Q1

REPORT INFORMATION
  Report Type: Spontaneous
  Country: CN (occurrence: None)
  Receive Date: 20140108
  Receipt Date: 20140108
  Transmission Date: 20141002
  Serious: Yes (Other)
  Sender: FDA-Public Use
  Company Number: FK201305586

PATIENT
  Age: 72 Year
  Sex: Female
  Weight: 35 kg

DRUGS (1)
  1. INTRALIPID [Suspect]
     Indication: DECREASED APPETITE
     Dosage: 20 ML, 250ML PLANNED, 1 D

REACTIONS (7)
  - Dyspnoea [None]
  - Chest discomfort [None]
  - Cyanosis [None]
  - Cold sweat [None]
  - Dysphoria [None]
  - Blood pressure decreased [None]
  - Sinus tachycardia [None]
